FAERS Safety Report 23638244 (Version 3)
Quarter: 2024Q3

REPORT INFORMATION
  Report Type: Report from Study
  Country: CN (occurrence: CN)
  Receive Date: 20240315
  Receipt Date: 20240705
  Transmission Date: 20241017
  Serious: Yes (Other)
  Sender: ROCHE
  Company Number: CN-ROCHE-3524848

PATIENT
  Age: 41 Year
  Sex: Female

DRUGS (5)
  1. POLATUZUMAB VEDOTIN [Suspect]
     Active Substance: POLATUZUMAB VEDOTIN
     Indication: Diffuse large B-cell lymphoma
     Dosage: FREQUENCY TEXT:ONLY ONCE
     Route: 041
     Dates: start: 20240207, end: 20240207
  2. RITUXIMAB [Suspect]
     Active Substance: RITUXIMAB
     Indication: Diffuse large B-cell lymphoma
     Dosage: IVGTT, ONLY ONCE? FREQUENCY TEXT:ONLY ONCE
     Route: 041
     Dates: start: 20240203, end: 20240203
  3. CYCLOPHOSPHAMIDE [Suspect]
     Active Substance: CYCLOPHOSPHAMIDE
     Indication: Diffuse large B-cell lymphoma
     Dosage: IVGTT, Q12H, D1-D3,
     Route: 042
     Dates: start: 20240204, end: 20240206
  4. DEXAMETHASONE SODIUM PHOSPHATE [Suspect]
     Active Substance: DEXAMETHASONE PHOSPHATE\DEXAMETHASONE SODIUM PHOSPHATE
     Indication: Diffuse large B-cell lymphoma
     Dosage: IVGTT,
     Route: 042
     Dates: start: 20240203
  5. DOXORUBICIN HYDROCHLORIDE [Suspect]
     Active Substance: DOXORUBICIN HYDROCHLORIDE
     Indication: Diffuse large B-cell lymphoma
     Dosage: IVGTT, ONLY ONCE? FREQUENCY TEXT:ONLY ONCE
     Route: 042
     Dates: start: 20240207, end: 20240207

REACTIONS (16)
  - Upper respiratory tract infection [Recovered/Resolved]
  - Gastrooesophageal reflux disease [Recovered/Resolved]
  - Neurotoxicity [Recovered/Resolved]
  - Constipation [Recovered/Resolved]
  - Stomatitis [Recovered/Resolved]
  - Pharyngitis [Recovering/Resolving]
  - Fatigue [Recovering/Resolving]
  - Hyperlipidaemia [Recovering/Resolving]
  - Hepatic function abnormal [Recovered/Resolved]
  - Hypokalaemia [Recovered/Resolved]
  - Gastrointestinal disorder [Recovered/Resolved]
  - Oral disorder [Recovered/Resolved]
  - Pneumonia [Recovered/Resolved]
  - Palmar-plantar erythrodysaesthesia syndrome [Recovering/Resolving]
  - Myelosuppression [Recovered/Resolved]
  - Drug-induced liver injury [Recovered/Resolved]

NARRATIVE: CASE EVENT DATE: 20240209
